FAERS Safety Report 9550067 (Version 1)
Quarter: 2013Q3

REPORT INFORMATION
  Report Type: Spontaneous
  Country: US (occurrence: US)
  Receive Date: 20130924
  Receipt Date: 20130924
  Transmission Date: 20140515
  Serious: No
  Sender: FDA-Public Use
  Company Number: US-009507513-1302USA012094

PATIENT
  Age: 22 Year
  Sex: Female

DRUGS (1)
  1. DEXAMETHASONE [Suspect]
     Indication: THROMBOCYTOPENIA
     Dosage: 40 MG, FOR 4 DAYS
     Route: 042

REACTIONS (1)
  - Exposure during pregnancy [Recovered/Resolved]
